FAERS Safety Report 6539365-3 (Version None)
Quarter: 2010Q1

REPORT INFORMATION
  Report Type: 
  Country: None (occurrence: None)
  Receive Date: 20100115
  Receipt Date: 20100104
  Transmission Date: 20100710
  Serious: Yes (Death)
  Sender: FDA-Public Use
  Company Number: US-PFIZER INC-2010000996

PATIENT
  Age: 56 Year
  Sex: Male

DRUGS (13)
  1. PHENYTOIN AND PHENYTOIN SODIUM [Suspect]
     Route: 048
  2. PREGABALIN [Suspect]
     Route: 048
  3. PHENOBARBITAL [Suspect]
     Route: 048
  4. QUETIAPINE [Suspect]
     Route: 048
  5. TRAZODONE [Suspect]
     Route: 048
  6. ESCITALOPRAM [Suspect]
     Route: 048
  7. EMTRICITABINE/TENOFOVIR [Suspect]
     Route: 048
  8. OXYCODONE [Suspect]
     Route: 048
  9. METHYLPHENIDATE [Suspect]
     Route: 048
  10. METFORMIN [Suspect]
     Route: 048
  11. ZOLPIDEM [Suspect]
     Route: 048
  12. ONDANSETRON [Suspect]
     Route: 048
  13. METOCLOPRAMIDE [Suspect]
     Route: 048

REACTIONS (1)
  - COMPLETED SUICIDE [None]
